FAERS Safety Report 8190252-7 (Version None)
Quarter: 2012Q1

REPORT INFORMATION
  Report Type: 
  Country: None (occurrence: None)
  Receive Date: 20120305
  Receipt Date: 20120221
  Transmission Date: 20120608
  Serious: Yes (Hospitalization, Other)
  Sender: FDA-Public Use
  Company Number: JPI-P-014316

PATIENT
  Age: 31 Year
  Sex: Female

DRUGS (2)
  1. XYREM [Suspect]
     Indication: NARCOLEPSY
     Dosage: 6 GM (3 GM, 2 IN 1 D) ,ORAL 2.25 GM FIRST DOSE/4.5 GM SECOND DOSE),ORAL
     Route: 048
     Dates: start: 20111103
  2. XYREM [Suspect]
     Indication: NARCOLEPSY
     Dosage: 6 GM (3 GM, 2 IN 1 D) ,ORAL 2.25 GM FIRST DOSE/4.5 GM SECOND DOSE),ORAL
     Route: 048
     Dates: start: 20070919

REACTIONS (9)
  - THORACIC OUTLET SYNDROME [None]
  - URTICARIA [None]
  - MATERNAL EXPOSURE DURING PREGNANCY [None]
  - NEURALGIA [None]
  - INITIAL INSOMNIA [None]
  - ABORTION SPONTANEOUS [None]
  - JUGULAR VEIN DISTENSION [None]
  - HEAT RASH [None]
  - MYOCLONUS [None]
